FAERS Safety Report 6213921-4 (Version None)
Quarter: 2009Q2

REPORT INFORMATION
  Report Type: 
  Country: None (occurrence: None)
  Receive Date: 20090602
  Receipt Date: 20090521
  Transmission Date: 20091009
  Serious: Yes (Hospitalization)
  Sender: FDA-Public Use
  Company Number: 2009-197172-NL

PATIENT
  Sex: Female

DRUGS (8)
  1. MIRTAZAPINE [Suspect]
     Indication: DEPRESSION
     Dosage: 15 MG ORAL
     Route: 048
     Dates: start: 20090511, end: 20090511
  2. CYCLIZINE [Suspect]
     Indication: NAUSEA
     Dosage: 50 MG ORAL
     Route: 048
     Dates: start: 20090511, end: 20090511
  3. CYCLIZINE [Suspect]
     Indication: VOMITING
     Dosage: 50 MG ORAL
     Route: 048
     Dates: start: 20090511, end: 20090511
  4. HYOSCINE HBR HYT [Concomitant]
  5. ALENDRONATE SODIUM [Concomitant]
  6. FUROSEMIDE [Concomitant]
  7. MORPHINE SULFATE [Concomitant]
  8. SIMVASTATIN [Concomitant]

REACTIONS (3)
  - DRUG INEFFECTIVE [None]
  - DYSKINESIA [None]
  - RESTLESS LEGS SYNDROME [None]
